FAERS Safety Report 5690415-6 (Version None)
Quarter: 2008Q1

REPORT INFORMATION
  Report Type: 
  Country: None (occurrence: None)
  Receive Date: 20080331
  Receipt Date: 20080331
  Transmission Date: 20080703
  Serious: Yes (Other)
  Sender: FDA-Public Use
  Company Number: None

PATIENT
  Age: 4 Year
  Sex: Female
  Weight: 19.0511 kg

DRUGS (2)
  1. SINGULAIR [Suspect]
     Indication: ASTHMA
     Dosage: 4-MG ONCE DAILY PO
     Route: 048
     Dates: start: 20070901, end: 20080328
  2. SINGULAIR [Suspect]
     Indication: MULTIPLE ALLERGIES
     Dosage: 4-MG ONCE DAILY PO
     Route: 048
     Dates: start: 20070901, end: 20080328

REACTIONS (7)
  - ABNORMAL BEHAVIOUR [None]
  - AGGRESSION [None]
  - CRYING [None]
  - DISSOCIATION [None]
  - EMOTIONAL DISORDER [None]
  - MOOD ALTERED [None]
  - SPEECH DISORDER [None]
